FAERS Safety Report 6319709-8 (Version None)
Quarter: 2009Q3

REPORT INFORMATION
  Report Type: 
  Country: None (occurrence: None)
  Receive Date: 20090822
  Receipt Date: 20080922
  Transmission Date: 20100115
  Serious: No
  Sender: FDA-Public Use
  Company Number: US-ABBOTT-08P-163-0477535-00

PATIENT
  Sex: Male
  Weight: 88.53 kg

DRUGS (3)
  1. NIASPAN [Suspect]
     Indication: BLOOD CHOLESTEROL
     Route: 048
     Dates: start: 20080301
  2. WARFARIN SODIUM [Concomitant]
     Indication: THROMBOSIS
  3. AMLODIPINE W/VALSARTAN [Concomitant]
     Indication: HYPERTENSION
     Dosage: 5/320 MG DAILY
     Route: 048

REACTIONS (4)
  - ERYTHEMA [None]
  - HOT FLUSH [None]
  - RASH MACULAR [None]
  - URTICARIA [None]
